FAERS Safety Report 8130820-1 (Version None)
Quarter: 2012Q1

REPORT INFORMATION
  Report Type: 
  Country: None (occurrence: None)
  Receive Date: 20120213
  Receipt Date: 20120203
  Transmission Date: 20120608
  Serious: No
  Sender: FDA-Public Use
  Company Number: US-BIOGENIDEC-2012BI004638

PATIENT
  Sex: Female

DRUGS (2)
  1. TRAMADOL HCL [Concomitant]
     Indication: PRODUCT USED FOR UNKNOWN INDICATION
  2. AVONEX [Suspect]
     Indication: MULTIPLE SCLEROSIS
     Route: 030
     Dates: start: 20120110

REACTIONS (8)
  - CONFUSIONAL STATE [None]
  - PAIN [None]
  - CARDIAC DISORDER [None]
  - FATIGUE [None]
  - FEELING HOT [None]
  - OPTIC NEURITIS [None]
  - FIBROMYALGIA [None]
  - CARDIOVASCULAR DISORDER [None]
